FAERS Safety Report 22640657 (Version 1)
Quarter: 2023Q2

REPORT INFORMATION
  Report Type: Spontaneous
  Country: RS (occurrence: RS)
  Receive Date: 20230626
  Receipt Date: 20230626
  Transmission Date: 20230721
  Serious: Yes (Life-Threatening, Hospitalization)
  Sender: FDA-Public Use
  Company Number: RS-MYLANLABS-2023M1066898

PATIENT
  Age: 57 Year
  Sex: Male

DRUGS (1)
  1. MAGNESIUM [Suspect]
     Active Substance: MAGNESIUM
     Indication: Supplementation therapy
     Dosage: RECEIVED PILL FOR 2 MONTHS
     Route: 065
     Dates: start: 2021

REACTIONS (3)
  - Intentional product misuse [Recovered/Resolved]
  - Myasthenic syndrome [Recovered/Resolved]
  - Respiratory failure [Recovered/Resolved]
